FAERS Safety Report 21285726 (Version 1)
Quarter: 2022Q3

REPORT INFORMATION
  Report Type: Spontaneous
  Country: US (occurrence: None)
  Receive Date: 20220901
  Receipt Date: 20220901
  Transmission Date: 20221027
  Serious: Yes (Disabling)
  Sender: FDA-Public Use
  Company Number: None

PATIENT
  Age: 73 Year
  Sex: Female
  Weight: 72 kg

DRUGS (10)
  1. PROLIA [Suspect]
     Active Substance: DENOSUMAB
     Indication: Bone density abnormal
     Dates: start: 20210901, end: 20220314
  2. FLONASE [Concomitant]
     Active Substance: FLUTICASONE PROPIONATE
  3. ASTEPRO [Concomitant]
     Active Substance: AZELASTINE HYDROCHLORIDE
  4. LEVOTHYROXINE [Concomitant]
     Active Substance: LEVOTHYROXINE
  5. VITAMIN D NOS [Concomitant]
     Active Substance: VITAMIN D NOS
  6. VITAMINS [Concomitant]
     Active Substance: VITAMINS
  7. CALCIUM [Concomitant]
     Active Substance: CALCIUM
  8. Digestin [Concomitant]
  9. LACTASE [Concomitant]
     Active Substance: LACTASE
  10. OMEGA 3 [Concomitant]
     Active Substance: CAPSAICIN

REACTIONS (3)
  - Arthralgia [None]
  - Gait disturbance [None]
  - Sleep disorder [None]

NARRATIVE: CASE EVENT DATE: 20220314
